FAERS Safety Report 26082395 (Version 2)
Quarter: 2025Q4

REPORT INFORMATION
  Report Type: Spontaneous
  Country: US (occurrence: US)
  Receive Date: 20251124
  Receipt Date: 20251124
  Transmission Date: 20260118
  Serious: Yes (Other)
  Sender: GILEAD
  Company Number: US-GILEAD-2025-0737097

PATIENT

DRUGS (1)
  1. TRUVADA [Suspect]
     Active Substance: EMTRICITABINE\TENOFOVIR DISOPROXIL FUMARATE
     Indication: Epstein-Barr virus infection
     Dosage: UNK
     Route: 065

REACTIONS (10)
  - Mast cell activation syndrome [Unknown]
  - Cough [Unknown]
  - Flushing [Unknown]
  - Abdominal pain [Unknown]
  - Sneezing [Unknown]
  - Eye irritation [Unknown]
  - Oropharyngeal pain [Recovering/Resolving]
  - Dyspnoea [Unknown]
  - Muscle spasms [Recovering/Resolving]
  - Product use in unapproved indication [Recovered/Resolved]
